FAERS Safety Report 21718948 (Version 2)
Quarter: 2023Q1

REPORT INFORMATION
  Report Type: Report from Study
  Country: FR (occurrence: None)
  Receive Date: 20221213
  Receipt Date: 20230124
  Transmission Date: 20230418
  Serious: Yes (Death)
  Sender: FDA-Public Use
  Company Number: 2022A400053

PATIENT
  Age: 721 Month
  Sex: Male
  Weight: 57 kg

DRUGS (3)
  1. EVUSHELD [Suspect]
     Active Substance: CILGAVIMAB\TIXAGEVIMAB
     Indication: COVID-19 prophylaxis
     Dosage: DOSE UNKNOWN ONCE/SINGLE ADMINISTRATION
     Route: 030
     Dates: start: 20220111
  2. EVUSHELD [Suspect]
     Active Substance: CILGAVIMAB\TIXAGEVIMAB
     Indication: COVID-19 prophylaxis
     Dosage: DOSE UNKNOWN ONCE/SINGLE ADMINISTRATION
     Route: 030
     Dates: end: 20220905
  3. IBRUTINIB [Concomitant]
     Active Substance: IBRUTINIB
     Indication: Immunosuppressant drug therapy
     Route: 065

REACTIONS (1)
  - Glioblastoma [Fatal]

NARRATIVE: CASE EVENT DATE: 20221114
